FAERS Safety Report 10385337 (Version 2)
Quarter: 2014Q3

REPORT INFORMATION
  Report Type: Spontaneous
  Country: US (occurrence: US)
  Receive Date: 20140814
  Receipt Date: 20140814
  Transmission Date: 20150326
  Serious: Yes (Hospitalization, Disabling, Other)
  Sender: FDA-Public Use
  Company Number: US-009507513-2008-179019-NL

PATIENT
  Sex: Female
  Weight: 72.6 kg

DRUGS (2)
  1. NUVARING [Suspect]
     Active Substance: ETHINYL ESTRADIOL\ETONOGESTREL
     Indication: CONTRACEPTION
     Dosage: DOSE TEXT: 3 WEEKS OUT OF 4, EVERY MONTH, CONTINUING: NO
     Route: 067
     Dates: start: 200306, end: 20070905
  2. COUMADIN [Suspect]
     Active Substance: WARFARIN SODIUM
     Indication: PULMONARY EMBOLISM
     Dates: start: 20070905

REACTIONS (13)
  - Breast disorder [Not Recovered/Not Resolved]
  - Chest pain [Unknown]
  - Urinary tract infection [Unknown]
  - Menorrhagia [Unknown]
  - Vision blurred [Unknown]
  - Deep vein thrombosis [Unknown]
  - Bunion operation [Unknown]
  - Dizziness [Unknown]
  - Syncope [Unknown]
  - Headache [Unknown]
  - Pulmonary embolism [Recovered/Resolved]
  - Foot deformity [Recovered/Resolved]
  - Tooth abscess [Unknown]

NARRATIVE: CASE EVENT DATE: 20070629
